FAERS Safety Report 5585400-9 (Version None)
Quarter: 2008Q1

REPORT INFORMATION
  Report Type: 
  Country: None (occurrence: None)
  Receive Date: 20080109
  Receipt Date: 20071228
  Transmission Date: 20080703
  Serious: Yes (Life-Threatening)
  Sender: FDA-Public Use
  Company Number: PA-ROCHE-536748

PATIENT
  Age: 56 Year
  Sex: Female
  Weight: 55 kg

DRUGS (2)
  1. CAPECITABINE [Suspect]
     Dosage: GIVEN SPLIT IN TWO DAILY DOSES ON DAYS 1-14 OF EACH 21-DAY CYCLE, PER PROTOCOL.
     Route: 048
     Dates: start: 20070920, end: 20071213
  2. BLINDED BEVACIZUMAB [Suspect]
     Route: 042
     Dates: start: 20070228

REACTIONS (1)
  - CARDIOGENIC SHOCK [None]
